FAERS Safety Report 25439412 (Version 2)
Quarter: 2025Q3

REPORT INFORMATION
  Report Type: Spontaneous
  Country: US (occurrence: US)
  Receive Date: 20250616
  Receipt Date: 20250724
  Transmission Date: 20251021
  Serious: No
  Sender: ALKERMES
  Company Number: US-ALKERMES INC.-ALK-2025-001564

PATIENT
  Sex: Female

DRUGS (1)
  1. VIVITROL [Suspect]
     Active Substance: NALTREXONE
     Indication: Product used for unknown indication
     Route: 030

REACTIONS (4)
  - Wound [Unknown]
  - Injection site mass [Unknown]
  - Injection site bruising [Unknown]
  - Injection site pruritus [Unknown]
